FAERS Safety Report 11773599 (Version 2)
Quarter: 2015Q4

REPORT INFORMATION
  Report Type: Report from Study
  Country: NL (occurrence: NL)
  Receive Date: 20151124
  Receipt Date: 20151204
  Transmission Date: 20160304
  Serious: Yes (Hospitalization)
  Sender: FDA-Public Use
  Company Number: PHHO2015NL019285

PATIENT
  Age: 73 Year
  Sex: Female
  Weight: 69.8 kg

DRUGS (9)
  1. CELLCEPT [Suspect]
     Active Substance: MYCOPHENOLATE MOFETIL\MYCOPHENOLATE MOFETIL HYDROCHLORIDE
     Indication: RENAL TRANSPLANT
     Dosage: 750 MG (2 DAYS)
     Route: 065
     Dates: start: 20141126
  2. NO TREATMENT RECEIVED [Suspect]
     Active Substance: UNSPECIFIED INGREDIENT
     Indication: RENAL TRANSPLANT
     Dosage: NO TREATMENT
     Route: 065
  3. METOPROLOL [Concomitant]
     Active Substance: METOPROLOL
     Indication: HYPERTENSION
     Dosage: 50 MG, QD
     Route: 065
     Dates: start: 20141127, end: 20151112
  4. LERIDIP [Concomitant]
     Indication: HYPERTENSION
     Dosage: 10 MG, QD
     Route: 065
     Dates: start: 20150617, end: 20151112
  5. PROGRAF [Suspect]
     Active Substance: TACROLIMUS\TACROLIMUS ANHYDROUS
     Indication: RENAL TRANSPLANT
     Dosage: 7 MG, (4+3 MG)
     Route: 065
     Dates: start: 20141126
  6. DOXAZOCIN [Concomitant]
     Active Substance: DOXAZOSIN MESYLATE
     Indication: HYPERTENSION
     Dosage: 4 MG, QD
     Route: 065
     Dates: start: 20150219, end: 20151112
  7. IRBESARTAN. [Concomitant]
     Active Substance: IRBESARTAN
     Indication: HYPERTENSION
     Dosage: 300 MG, QD
     Route: 065
     Dates: start: 20141204, end: 20151112
  8. PREDNISOLON [Suspect]
     Active Substance: PREDNISOLONE
     Indication: RENAL TRANSPLANT
     Dosage: 5 MG, QD
     Route: 065
     Dates: start: 20141128
  9. CELLCEPT [Suspect]
     Active Substance: MYCOPHENOLATE MOFETIL\MYCOPHENOLATE MOFETIL HYDROCHLORIDE
     Dosage: UNK
     Route: 065
     Dates: start: 20151112

REACTIONS (1)
  - Diarrhoea [Recovering/Resolving]

NARRATIVE: CASE EVENT DATE: 20151112
